FAERS Safety Report 19027052 (Version 1)
Quarter: 2021Q1

REPORT INFORMATION
  Report Type: Spontaneous
  Country: US (occurrence: US)
  Receive Date: 20210318
  Receipt Date: 20210318
  Transmission Date: 20210420
  Serious: Yes (Other)
  Sender: FDA-Public Use
  Company Number: US-TEVA-2021-US-1892887

PATIENT
  Sex: Female

DRUGS (5)
  1. HYDROCODONE BITARTRATE AND ACETAMINOPHEN [Suspect]
     Active Substance: ACETAMINOPHEN\HYDROCODONE BITARTRATE
     Route: 065
  2. OXY APAP [Suspect]
     Active Substance: ACETAMINOPHEN\OXYCODONE HYDROCHLORIDE
     Route: 065
  3. TRAMADOL ER [Suspect]
     Active Substance: TRAMADOL HYDROCHLORIDE
     Route: 065
  4. HEROIN [Suspect]
     Active Substance: DIAMORPHINE
     Route: 065
  5. OXYCONTIN [Suspect]
     Active Substance: OXYCODONE HYDROCHLORIDE
     Route: 065

REACTIONS (6)
  - Post-traumatic stress disorder [Unknown]
  - Personal relationship issue [Unknown]
  - Drug dependence [Unknown]
  - Schizophrenia [Unknown]
  - Substance use disorder [Unknown]
  - Loss of employment [Unknown]
